FAERS Safety Report 5316662-0 (Version None)
Quarter: 2007Q2

REPORT INFORMATION
  Report Type: 
  Country: None (occurrence: None)
  Receive Date: 20070430
  Receipt Date: 20070430
  Transmission Date: 20071010
  Serious: No
  Sender: FDA-Public Use
  Company Number: None

PATIENT
  Sex: Female
  Weight: 90.7194 kg

DRUGS (2)
  1. ZELNORM [Suspect]
     Indication: DIARRHOEA
     Dosage: 1 TABLET AT BEDTIME
     Dates: start: 20040401, end: 20070411
  2. ZELNORM [Suspect]
     Indication: IRRITABLE BOWEL SYNDROME
     Dosage: 1 TABLET AT BEDTIME
     Dates: start: 20040401, end: 20070411

REACTIONS (3)
  - DYSPNOEA [None]
  - FATIGUE [None]
  - PHARMACEUTICAL PRODUCT COMPLAINT [None]
